FAERS Safety Report 7827376-7 (Version None)
Quarter: 2011Q4

REPORT INFORMATION
  Report Type: 
  Country: None (occurrence: None)
  Receive Date: 20111020
  Receipt Date: 20111014
  Transmission Date: 20120403
  Serious: Yes (Hospitalization)
  Sender: FDA-Public Use
  Company Number: IE-BRISTOL-MYERS SQUIBB COMPANY-16166837

PATIENT
  Age: 89 Year
  Sex: Female

DRUGS (3)
  1. ASPIRIN [Suspect]
  2. ONGLYZA [Suspect]
     Indication: DIABETES MELLITUS
     Dates: start: 20110101
  3. METFORMIN HCL [Suspect]

REACTIONS (3)
  - FALL [None]
  - RASH [None]
  - NAUSEA [None]
